FAERS Safety Report 5047169-6 (Version None)
Quarter: 2006Q3

REPORT INFORMATION
  Report Type: 
  Country: None (occurrence: None)
  Receive Date: 20060703
  Receipt Date: 20060621
  Transmission Date: 20061208
  Serious: Yes (Other)
  Sender: FDA-Public Use
  Company Number: 2006080738

PATIENT
  Age: 30 Year
  Sex: Male

DRUGS (2)
  1. CETIRIZINE HCL [Suspect]
     Dosage: ORAL
     Route: 048
  2. CETIRIZINE HCL AND PSEUDOEPHEDRINE HCL [Suspect]
     Dosage: ORAL
     Route: 048

REACTIONS (2)
  - ASTHMA [None]
  - CHEST DISCOMFORT [None]
